FAERS Safety Report 22385645 (Version 3)
Quarter: 2023Q4

REPORT INFORMATION
  Report Type: Spontaneous
  Country: US (occurrence: US)
  Receive Date: 20230530
  Receipt Date: 20231019
  Transmission Date: 20240109
  Serious: Yes (Hospitalization, Other)
  Sender: FDA-Public Use
  Company Number: US-PFIZER INC-PV202300095235

PATIENT
  Age: 80 Year
  Sex: Female

DRUGS (1)
  1. VYNDAMAX [Suspect]
     Active Substance: TAFAMIDIS
     Dosage: 61 MG, 1X/DAY (ONE CAPSULE BY MOUTH EVERY EVENING)
     Route: 048

REACTIONS (4)
  - Asthma [Unknown]
  - Dementia [Unknown]
  - Memory impairment [Unknown]
  - Bronchitis [Unknown]

NARRATIVE: CASE EVENT DATE: 20230501
